FAERS Safety Report 25998768 (Version 1)
Quarter: 2025Q4

REPORT INFORMATION
  Report Type: Report from Study
  Country: US (occurrence: US)
  Receive Date: 20251105
  Receipt Date: 20251105
  Transmission Date: 20260118
  Serious: Yes (Hospitalization)
  Sender: GILEAD
  Company Number: US-GILEAD-2025-0734764

PATIENT
  Sex: Female

DRUGS (1)
  1. AZTREONAM LYSINE [Suspect]
     Active Substance: AZTREONAM LYSINE
     Indication: Cystic fibrosis
     Dosage: INHALE 1 VIAL (75 MG) VIA NEBULIZER BY MOUTH THREE TIMES DAILY 28 DAYS ON/ 28 DAYS OFF
     Route: 055
     Dates: start: 20221104

REACTIONS (1)
  - Cystic fibrosis respiratory infection suppression [Unknown]
